FAERS Safety Report 13766626 (Version 2)
Quarter: 2018Q4

REPORT INFORMATION
  Report Type: Spontaneous
  Country: FR (occurrence: FR)
  Receive Date: 20170719
  Receipt Date: 20181205
  Transmission Date: 20190204
  Serious: Yes (Hospitalization, Other)
  Sender: FDA-Public Use
  Company Number: FR-MYLANLABS-2017M1044165

PATIENT
  Age: 24 Year
  Sex: Female
  Weight: 51 kg

DRUGS (7)
  1. ACICLOVIR [Suspect]
     Active Substance: ACYCLOVIR
     Indication: HERPES SIMPLEX
     Dosage: 1 DF, UNK (5 APPLICATIONS DAILY)
     Route: 061
     Dates: start: 20170606, end: 20170607
  2. ACICLOVIR [Suspect]
     Active Substance: ACYCLOVIR
     Dosage: 5 DOSAGE FORM, UNK
     Route: 003
     Dates: start: 20170606, end: 20170607
  3. CODEINE PHOSPHATE HYDRATE [Suspect]
     Active Substance: CODEINE PHOSPHATE
     Indication: MIGRAINE
     Dosage: 1 DF, QD
     Dates: start: 20170606, end: 20170607
  4. ACICLOVIR [Suspect]
     Active Substance: ACYCLOVIR
     Dosage: 4 DOSAGE FORM, BID
     Route: 048
     Dates: start: 20170606, end: 20170607
  5. KETUM [Suspect]
     Active Substance: KETOPROFEN
     Indication: PAIN
     Dosage: 2-3 TABLETS DAILY
     Route: 048
     Dates: start: 20170603, end: 20170607
  6. ACICLOVIR [Suspect]
     Active Substance: ACYCLOVIR
     Indication: HERPES SIMPLEX
     Dosage: 800 MG, BID (200 MG 4 TABLETS IN THE MORNING AND IN THE EVENING)
     Route: 048
     Dates: start: 20170606, end: 20170607
  7. ACETAMINOPHEN. [Suspect]
     Active Substance: ACETAMINOPHEN
     Indication: MIGRAINE
     Dosage: 1 DF, QD
     Route: 048
     Dates: start: 20170606, end: 20170607

REACTIONS (3)
  - Overdose [Unknown]
  - Pancreatitis acute [Recovered/Resolved]
  - Off label use [Unknown]

NARRATIVE: CASE EVENT DATE: 20170608
